FAERS Safety Report 7723476-0 (Version None)
Quarter: 2011Q3

REPORT INFORMATION
  Report Type: 
  Country: None (occurrence: None)
  Receive Date: 20110901
  Receipt Date: 20110825
  Transmission Date: 20111222
  Serious: No
  Sender: FDA-Public Use
  Company Number: US-PFIZER INC-2011199075

PATIENT
  Sex: Female

DRUGS (2)
  1. AZITHROMYCIN [Suspect]
     Indication: TOOTH INFECTION
     Dosage: 250 MG, 2X/DAY
     Route: 048
     Dates: start: 20110817
  2. AZITHROMYCIN [Suspect]
     Indication: DENTAL CARIES
     Dosage: 250 MG, DAILY
     Route: 048
     Dates: start: 20110819, end: 20110821

REACTIONS (1)
  - DIZZINESS [None]
